FAERS Safety Report 22357200 (Version 10)
Quarter: 2023Q4

REPORT INFORMATION
  Report Type: Spontaneous
  Country: FR (occurrence: FR)
  Receive Date: 20230524
  Receipt Date: 20231025
  Transmission Date: 20240110
  Serious: Yes (Death, Hospitalization, Congenital Anomaly, Other)
  Sender: FDA-Public Use
  Company Number: FR-VIIV HEALTHCARE LIMITED-FR2023EME067747

PATIENT
  Sex: Female
  Weight: 3.58 kg

DRUGS (5)
  1. NORVIR [Suspect]
     Active Substance: RITONAVIR
     Indication: Maternal exposure timing unspecified
     Route: 064
  2. RILPIVIRINE [Suspect]
     Active Substance: RILPIVIRINE
     Indication: Maternal exposure timing unspecified
     Route: 064
  3. TRUVADA [Suspect]
     Active Substance: EMTRICITABINE\TENOFOVIR DISOPROXIL FUMARATE
     Indication: Maternal exposure timing unspecified
     Route: 064
  4. PREZISTA [Suspect]
     Active Substance: DARUNAVIR ETHANOLATE
     Indication: Maternal exposure timing unspecified
     Route: 064
  5. VOCABRIA [Suspect]
     Active Substance: CABOTEGRAVIR SODIUM
     Indication: Maternal exposure timing unspecified
     Route: 064

REACTIONS (17)
  - Atrioventricular septal defect [Fatal]
  - Congenital tricuspid valve incompetence [Unknown]
  - Coma [Unknown]
  - Heart disease congenital [Unknown]
  - Foetal exposure during pregnancy [Unknown]
  - Eyelid oedema [Unknown]
  - Central venous catheterisation [Unknown]
  - Eye disorder [Unknown]
  - Ventricular septal defect [Unknown]
  - Heart disease congenital [Fatal]
  - Congenital aortic valve incompetence [Unknown]
  - Ventricular hypoplasia [Unknown]
  - Patent ductus arteriosus [Unknown]
  - Hyponatraemia [Unknown]
  - Oedema [Unknown]
  - Hepatic failure [Unknown]
  - Pulmonary alveolar haemorrhage [Unknown]

NARRATIVE: CASE EVENT DATE: 20230509
